FAERS Safety Report 21634041 (Version 4)
Quarter: 2023Q1

REPORT INFORMATION
  Report Type: Report from Study
  Country: IT (occurrence: IT)
  Receive Date: 20221123
  Receipt Date: 20230131
  Transmission Date: 20230418
  Serious: Yes (Hospitalization)
  Sender: FDA-Public Use
  Company Number: IT-PFIZER INC-PV202200107951

PATIENT
  Age: 36 Year
  Sex: Female

DRUGS (2)
  1. CYTOTEC [Suspect]
     Active Substance: MISOPROSTOL
     Indication: Abortion induced
     Dosage: 200 UG X 5 (2XDAY AND 3X DAY 5 HRS LATER)
     Route: 048
     Dates: start: 20180227, end: 20180227
  2. CYTOTEC [Suspect]
     Active Substance: MISOPROSTOL
     Dosage: 200 UG X 6 (3XDAY AND 3XDAY 3 HRS LATER)
     Route: 048
     Dates: start: 20180307, end: 20180307

REACTIONS (1)
  - Post abortion haemorrhage [Recovered/Resolved]

NARRATIVE: CASE EVENT DATE: 20180227
